FAERS Safety Report 5744183-X (Version None)
Quarter: 2008Q2

REPORT INFORMATION
  Report Type: 
  Country: None (occurrence: None)
  Receive Date: 20080520
  Receipt Date: 20080520
  Transmission Date: 20081010
  Serious: Yes (Other)
  Sender: FDA-Public Use
  Company Number: A0728680A

PATIENT
  Age: 67 Year
  Sex: Female

DRUGS (2)
  1. NICORETTE [Suspect]
     Indication: SMOKING CESSATION THERAPY
     Dosage: 2MG UNKNOWN
     Route: 002
  2. NICORETTE [Suspect]
     Indication: SMOKING CESSATION THERAPY
     Dosage: 4MG UNKNOWN
     Route: 002

REACTIONS (5)
  - DEPENDENCE [None]
  - HEART RATE INCREASED [None]
  - PERIODONTAL DISEASE [None]
  - TOOTH DISORDER [None]
  - TOOTH LOSS [None]
